FAERS Safety Report 6927845-8 (Version None)
Quarter: 2010Q3

REPORT INFORMATION
  Report Type: 
  Country: None (occurrence: None)
  Receive Date: 20100817
  Receipt Date: 20100804
  Transmission Date: 20110219
  Serious: No
  Sender: FDA-Public Use
  Company Number: US-PFIZER INC-2010099157

PATIENT
  Sex: Female
  Weight: 73.923 kg

DRUGS (6)
  1. GABAPENTIN [Suspect]
     Indication: NEUROPATHY PERIPHERAL
     Dosage: 600 MG, 5 TIMES DAILY
     Route: 048
     Dates: start: 20100101
  2. PLAVIX [Concomitant]
     Dosage: 75 MG, UNK
  3. LORTAB [Concomitant]
     Indication: INTERVERTEBRAL DISC DEGENERATION
     Dosage: 10 MG, 4X/DAY
  4. LANTUS [Concomitant]
     Indication: DIABETES MELLITUS
     Dosage: 100 UNITS, DAILY
  5. HUMALOG [Concomitant]
     Indication: DIABETES MELLITUS
     Dosage: 90 UNK, 3X/DAY
  6. ZESTORETIC [Concomitant]
     Indication: HYPERTENSION
     Dosage: 12.5 MG, UNK

REACTIONS (3)
  - DISTURBANCE IN ATTENTION [None]
  - FEELING ABNORMAL [None]
  - SOMNOLENCE [None]
